FAERS Safety Report 7294646-3 (Version None)
Quarter: 2011Q1

REPORT INFORMATION
  Report Type: 
  Country: None (occurrence: None)
  Receive Date: 20110216
  Receipt Date: 20110203
  Transmission Date: 20110831
  Serious: Yes (Hospitalization)
  Sender: FDA-Public Use
  Company Number: DE-RANBAXY-2011US-41645

PATIENT

DRUGS (9)
  1. SPIRIVA [Suspect]
     Indication: CHRONIC OBSTRUCTIVE PULMONARY DISEASE
     Dosage: 18 MG, UNK
     Route: 045
  2. LASIX [Suspect]
     Indication: PRODUCT USED FOR UNKNOWN INDICATION
     Dosage: 40 MG, UNK
     Route: 048
  3. RAMIPRIL RANBAXY 1,25MG COMPRIME [Suspect]
     Indication: PRODUCT USED FOR UNKNOWN INDICATION
     Dosage: 5 MG, UNK
     Route: 048
  4. PREVISCAN [Suspect]
     Indication: ATRIAL FIBRILLATION
     Dosage: 20 MG, DEPENDING ON INR
     Route: 048
     Dates: end: 20101111
  5. EUPANTOL [Suspect]
     Indication: PRODUCT USED FOR UNKNOWN INDICATION
     Dosage: 40 MG, QD
     Route: 048
  6. DIGOXIN [Suspect]
     Indication: CARDIAC FAILURE
     Dosage: UNK
     Route: 048
  7. CARDENTIEL [Suspect]
     Indication: CARDIAC FAILURE
     Dosage: UNK
     Route: 048
  8. PREVISCAN [Suspect]
     Dosage: UNK
     Route: 048
  9. DOXAZOSIN MESYLATE [Suspect]
     Indication: PROSTATE CANCER
     Dosage: 4 MG, UNK
     Route: 048

REACTIONS (1)
  - NORMOCHROMIC NORMOCYTIC ANAEMIA [None]
